FAERS Safety Report 18318894 (Version 1)
Quarter: 2020Q3

REPORT INFORMATION
  Report Type: Other
  Country: US (occurrence: US)
  Receive Date: 20200928
  Receipt Date: 20200928
  Transmission Date: 20201103
  Serious: Yes (Life-Threatening, Hospitalization)
  Sender: FDA-Public Use
  Company Number: US-EYWA PHARMA INC.-2092210

PATIENT
  Age: 6 Year
  Sex: Male
  Weight: 22 kg

DRUGS (4)
  1. OXCARBAZEPINE. [Concomitant]
     Active Substance: OXCARBAZEPINE
     Route: 065
  2. SERTRALINE [Concomitant]
     Active Substance: SERTRALINE HYDROCHLORIDE
     Route: 065
  3. GABAPENTIN. [Concomitant]
     Active Substance: GABAPENTIN
     Route: 065
  4. BACLOFEN. [Suspect]
     Active Substance: BACLOFEN
     Indication: MUSCLE SPASTICITY
     Route: 065

REACTIONS (8)
  - General physical health deterioration [Recovered/Resolved]
  - Toxic encephalopathy [Recovered/Resolved]
  - Respiratory failure [Recovered/Resolved]
  - Accidental overdose [Unknown]
  - Persistent depressive disorder [Recovered/Resolved]
  - Coma [Recovered/Resolved]
  - Generalised tonic-clonic seizure [Recovered/Resolved]
  - Unresponsive to stimuli [Recovered/Resolved]
